FAERS Safety Report 4590586-9 (Version None)
Quarter: 2005Q1

REPORT INFORMATION
  Report Type: 
  Country: None (occurrence: None)
  Receive Date: 20050224
  Receipt Date: 20050218
  Transmission Date: 20050727
  Serious: Yes (Life-Threatening, Disabling, Other)
  Sender: FDA-Public Use
  Company Number: GB-GLAXOSMITHKLINE-B0372275A

PATIENT
  Age: 29 Year
  Sex: Male

DRUGS (2)
  1. ZYBAN [Suspect]
     Route: 048
  2. TYLEX [Concomitant]
     Route: 048
     Dates: start: 20040801

REACTIONS (2)
  - PSYCHIATRIC SYMPTOM [None]
  - SELF-INJURIOUS IDEATION [None]
